FAERS Safety Report 15488500 (Version 2)
Quarter: 2018Q4

REPORT INFORMATION
  Report Type: Spontaneous
  Country: CA (occurrence: CA)
  Receive Date: 20181011
  Receipt Date: 20181113
  Transmission Date: 20190205
  Serious: Yes (Death, Life-Threatening)
  Sender: FDA-Public Use
  Company Number: CA-BRACCO-2018CA05164

PATIENT
  Sex: Male

DRUGS (2)
  1. ISOVUE [Suspect]
     Active Substance: IOPAMIDOL
     Indication: ANGIOGRAM
     Dosage: 30 ML,(HAND MANIFOLD), 20ML VIA CVI INJECTOR
     Dates: start: 20180917, end: 20180917
  2. EPINEPHRINE. [Concomitant]
     Active Substance: EPINEPHRINE
     Dosage: 1 AMPULE
     Dates: start: 20180917, end: 20180917

REACTIONS (1)
  - Myocardial rupture [Unknown]
